FAERS Safety Report 13054001 (Version 3)
Quarter: 2017Q1

REPORT INFORMATION
  Report Type: Spontaneous
  Country: JP (occurrence: JP)
  Receive Date: 20161222
  Receipt Date: 20170223
  Transmission Date: 20170428
  Serious: Yes (Other)
  Sender: FDA-Public Use
  Company Number: PHJP2016JP037348

PATIENT
  Age: 5 Year
  Sex: Male
  Weight: 20 kg

DRUGS (4)
  1. DIPYRIDAMOLE. [Suspect]
     Active Substance: DIPYRIDAMOLE
     Indication: HENOCH-SCHONLEIN PURPURA NEPHRITIS
     Dosage: UNK
     Route: 048
     Dates: start: 20161001
  2. NEORAL [Suspect]
     Active Substance: CYCLOSPORINE
     Dosage: 120 MG, UNK
     Route: 048
     Dates: start: 20161129
  3. NEORAL [Suspect]
     Active Substance: CYCLOSPORINE
     Indication: HENOCH-SCHONLEIN PURPURA NEPHRITIS
     Dosage: 80 MG, UNK
     Route: 048
     Dates: start: 20161120, end: 20161128
  4. MIZORIBINE [Suspect]
     Active Substance: MIZORIBINE
     Indication: HENOCH-SCHONLEIN PURPURA NEPHRITIS
     Dosage: UNK
     Route: 048
     Dates: start: 20161001, end: 20161127

REACTIONS (2)
  - Product use issue [Unknown]
  - Epididymitis [Recovered/Resolved]

NARRATIVE: CASE EVENT DATE: 20161217
